FAERS Safety Report 7082537-2 (Version None)
Quarter: 2010Q4

REPORT INFORMATION
  Report Type: 
  Country: None (occurrence: None)
  Receive Date: 20101026
  Receipt Date: 20101019
  Transmission Date: 20110411
  Serious: Yes (Other)
  Sender: FDA-Public Use
  Company Number: 20108650

PATIENT
  Sex: Female

DRUGS (1)
  1. LIORESAL [Suspect]
     Indication: MUSCLE SPASTICITY
     Dosage: 1610 - 1800 MCG, DAILY, INTRATHECAL
     Route: 037

REACTIONS (2)
  - DRUG EFFECT DECREASED [None]
  - MUSCLE CONTRACTIONS INVOLUNTARY [None]
